FAERS Safety Report 5372443-3 (Version None)
Quarter: 2007Q2

REPORT INFORMATION
  Report Type: 
  Country: None (occurrence: None)
  Receive Date: 20070627
  Receipt Date: 20070427
  Transmission Date: 20071010
  Serious: Yes (Hospitalization)
  Sender: FDA-Public Use
  Company Number: PHHO2006US00971

PATIENT
  Age: 25 Year
  Sex: Female
  Weight: 43 kg

DRUGS (8)
  1. RAD001A [Suspect]
     Indication: RENAL TRANSPLANT
     Dosage: 2 MG, BID
     Route: 048
     Dates: start: 20021108
  2. CELLCEPT [Suspect]
     Indication: RENAL TRANSPLANT
  3. BACTRIM [Concomitant]
  4. LIPITOR [Concomitant]
  5. DARBEPOETIN ALFA [Concomitant]
  6. VITAMIN CAP [Concomitant]
  7. MYFORTIC [Suspect]
     Indication: RENAL TRANSPLANT
     Dosage: 360 MG, BID
     Route: 048
  8. MYFORTIC [Suspect]
     Dosage: 540 MG, BID
     Route: 048
     Dates: start: 20061108

REACTIONS (16)
  - ABDOMINAL PAIN [None]
  - DIARRHOEA [None]
  - DIZZINESS [None]
  - DYSPNOEA [None]
  - FATIGUE [None]
  - GASTROENTERITIS VIRAL [None]
  - GASTROINTESTINAL INFLAMMATION [None]
  - HIATUS HERNIA [None]
  - IRON DEFICIENCY ANAEMIA [None]
  - NAUSEA [None]
  - NON-CARDIAC CHEST PAIN [None]
  - PANCYTOPENIA [None]
  - PRODUCTIVE COUGH [None]
  - PYREXIA [None]
  - VOMITING [None]
  - WEIGHT DECREASED [None]
